FAERS Safety Report 6215445-7 (Version None)
Quarter: 2009Q2

REPORT INFORMATION
  Report Type: 
  Country: None (occurrence: None)
  Receive Date: 20090603
  Receipt Date: 20090519
  Transmission Date: 20091009
  Serious: Yes (Hospitalization)
  Sender: FDA-Public Use
  Company Number: TRP_06243_2009

PATIENT
  Age: 55 Year
  Sex: Male
  Weight: 96 kg

DRUGS (2)
  1. RIBAVIRIN [Suspect]
     Indication: HEPATITIS C
     Dosage: DF [DOSE REDUCED AFTER 2 MONTHS]
  2. PEGYLATED INTERFERON-ALFA-1A [Suspect]
     Indication: HEPATITIS C
     Dosage: DF

REACTIONS (10)
  - ANAEMIA [None]
  - ASTHENIA [None]
  - CHRONIC HEPATITIS [None]
  - FATIGUE [None]
  - GLYCOSYLATED HAEMOGLOBIN INCREASED [None]
  - HYPOAESTHESIA FACIAL [None]
  - POLYDIPSIA [None]
  - POLYURIA [None]
  - VISION BLURRED [None]
  - WEIGHT DECREASED [None]
